FAERS Safety Report 5917648-5 (Version None)
Quarter: 2008Q4

REPORT INFORMATION
  Report Type: 
  Country: None (occurrence: None)
  Receive Date: 20081014
  Receipt Date: 20081003
  Transmission Date: 20090506
  Serious: Yes (Hospitalization)
  Sender: FDA-Public Use
  Company Number: US-WYE-H06267708

PATIENT
  Sex: Female

DRUGS (2)
  1. EFFEXOR XR [Suspect]
  2. BENADRYL [Suspect]

REACTIONS (3)
  - INTENTIONAL OVERDOSE [None]
  - SKIN LACERATION [None]
  - SUICIDE ATTEMPT [None]
